FAERS Safety Report 16229036 (Version 3)
Quarter: 2019Q3

REPORT INFORMATION
  Report Type: Report from Study
  Country: JP (occurrence: JP)
  Receive Date: 20190423
  Receipt Date: 20190709
  Transmission Date: 20191004
  Serious: Yes (Death)
  Sender: FDA-Public Use
  Company Number: JP-ACTELION-A-CH2019-189193

PATIENT
  Age: 85 Year
  Sex: Male

DRUGS (5)
  1. OPSUMIT [Suspect]
     Active Substance: MACITENTAN
     Indication: PULMONARY ARTERIAL HYPERTENSION
     Dosage: 10 MG, QD
     Route: 048
     Dates: start: 20181214
  2. ASPIRIN. [Concomitant]
     Active Substance: ASPIRIN
  3. ADCIRCA [Concomitant]
     Active Substance: TADALAFIL
  4. PARIET [Concomitant]
     Active Substance: RABEPRAZOLE SODIUM
  5. OXYGEN. [Concomitant]
     Active Substance: OXYGEN

REACTIONS (2)
  - Influenza [Fatal]
  - Sudden death [Fatal]

NARRATIVE: CASE EVENT DATE: 20190315
